FAERS Safety Report 8355078-X (Version None)
Quarter: 2012Q2

REPORT INFORMATION
  Report Type: 
  Country: None (occurrence: None)
  Receive Date: 20120510
  Receipt Date: 20120423
  Transmission Date: 20120825
  Serious: No
  Sender: FDA-Public Use
  Company Number: 2012000011

PATIENT
  Age: 65 Year
  Sex: Female

DRUGS (4)
  1. ASPIRIN [Concomitant]
  2. ACEON [Suspect]
     Indication: HYPERTENSION
     Dosage: 4 MG, QD, ORAL; 10 MG, QD, ORAL
     Route: 048
     Dates: start: 20111215, end: 20120112
  3. ACEON [Suspect]
     Indication: HYPERTENSION
     Dosage: 4 MG, QD, ORAL; 10 MG, QD, ORAL
     Route: 048
     Dates: start: 20111115, end: 20111214
  4. AMLODIPINE BESILATE [Concomitant]

REACTIONS (2)
  - DIZZINESS [None]
  - DRY MOUTH [None]
